FAERS Safety Report 5598485-0 (Version None)
Quarter: 2008Q1

REPORT INFORMATION
  Report Type: 
  Country: None (occurrence: None)
  Receive Date: 20080122
  Receipt Date: 20080116
  Transmission Date: 20080703
  Serious: Yes (Other)
  Sender: FDA-Public Use
  Company Number: GB-MERCK-0801GBR00055

PATIENT
  Sex: Female

DRUGS (4)
  1. COSOPT [Suspect]
     Indication: GLAUCOMA
     Route: 047
     Dates: start: 20071201, end: 20080113
  2. COSOPT [Suspect]
     Route: 047
     Dates: start: 20060101, end: 20071201
  3. COSOPT [Suspect]
     Route: 047
     Dates: start: 20080101
  4. LUMIGAN [Concomitant]
     Route: 065

REACTIONS (1)
  - ERYTHEMA [None]
